FAERS Safety Report 25261109 (Version 1)
Quarter: 2025Q2

REPORT INFORMATION
  Report Type: Spontaneous
  Country: US (occurrence: US)
  Receive Date: 20250501
  Receipt Date: 20250501
  Transmission Date: 20250716
  Serious: Yes (Hospitalization)
  Sender: MYLAN
  Company Number: US-MYLANLABS-2025M1037287

PATIENT
  Age: 47 Year
  Sex: Male

DRUGS (56)
  1. VALPROIC ACID [Suspect]
     Active Substance: VALPROIC ACID
     Indication: Schizophrenia
     Route: 065
  2. VALPROIC ACID [Suspect]
     Active Substance: VALPROIC ACID
  3. VALPROIC ACID [Suspect]
     Active Substance: VALPROIC ACID
  4. VALPROIC ACID [Suspect]
     Active Substance: VALPROIC ACID
     Route: 065
  5. VALPROIC ACID [Suspect]
     Active Substance: VALPROIC ACID
     Route: 065
  6. VALPROIC ACID [Suspect]
     Active Substance: VALPROIC ACID
  7. VALPROIC ACID [Suspect]
     Active Substance: VALPROIC ACID
  8. VALPROIC ACID [Suspect]
     Active Substance: VALPROIC ACID
     Route: 065
  9. CLOZAPINE [Suspect]
     Active Substance: CLOZAPINE
     Indication: Schizophrenia
     Dosage: 50 MILLIGRAM, HS
  10. CLOZAPINE [Suspect]
     Active Substance: CLOZAPINE
     Dosage: 50 MILLIGRAM, HS
  11. CLOZAPINE [Suspect]
     Active Substance: CLOZAPINE
     Dosage: 50 MILLIGRAM, HS
     Route: 065
  12. CLOZAPINE [Suspect]
     Active Substance: CLOZAPINE
     Dosage: 50 MILLIGRAM, HS
     Route: 065
  13. CLOZAPINE [Suspect]
     Active Substance: CLOZAPINE
  14. CLOZAPINE [Suspect]
     Active Substance: CLOZAPINE
  15. CLOZAPINE [Suspect]
     Active Substance: CLOZAPINE
     Route: 065
  16. CLOZAPINE [Suspect]
     Active Substance: CLOZAPINE
     Route: 065
  17. CARIPRAZINE [Suspect]
     Active Substance: CARIPRAZINE
     Indication: Schizophrenia
  18. CARIPRAZINE [Suspect]
     Active Substance: CARIPRAZINE
     Route: 065
  19. CARIPRAZINE [Suspect]
     Active Substance: CARIPRAZINE
     Route: 065
  20. CARIPRAZINE [Suspect]
     Active Substance: CARIPRAZINE
  21. BREXPIPRAZOLE [Suspect]
     Active Substance: BREXPIPRAZOLE
     Indication: Schizophrenia
  22. BREXPIPRAZOLE [Suspect]
     Active Substance: BREXPIPRAZOLE
     Route: 065
  23. BREXPIPRAZOLE [Suspect]
     Active Substance: BREXPIPRAZOLE
     Route: 065
  24. BREXPIPRAZOLE [Suspect]
     Active Substance: BREXPIPRAZOLE
  25. QUETIAPINE [Suspect]
     Active Substance: QUETIAPINE
     Indication: Schizophrenia
  26. QUETIAPINE [Suspect]
     Active Substance: QUETIAPINE
     Route: 065
  27. QUETIAPINE [Suspect]
     Active Substance: QUETIAPINE
     Route: 065
  28. QUETIAPINE [Suspect]
     Active Substance: QUETIAPINE
  29. LITHIUM [Suspect]
     Active Substance: LITHIUM
     Indication: Schizophrenia
  30. LITHIUM [Suspect]
     Active Substance: LITHIUM
     Route: 065
  31. LITHIUM [Suspect]
     Active Substance: LITHIUM
     Route: 065
  32. LITHIUM [Suspect]
     Active Substance: LITHIUM
  33. LUMATEPERONE [Suspect]
     Active Substance: LUMATEPERONE
     Indication: Schizophrenia
  34. LUMATEPERONE [Suspect]
     Active Substance: LUMATEPERONE
     Route: 065
  35. LUMATEPERONE [Suspect]
     Active Substance: LUMATEPERONE
     Route: 065
  36. LUMATEPERONE [Suspect]
     Active Substance: LUMATEPERONE
  37. ASENAPINE [Suspect]
     Active Substance: ASENAPINE
     Indication: Schizophrenia
  38. ASENAPINE [Suspect]
     Active Substance: ASENAPINE
  39. ASENAPINE [Suspect]
     Active Substance: ASENAPINE
     Route: 065
  40. ASENAPINE [Suspect]
     Active Substance: ASENAPINE
     Route: 065
  41. ASENAPINE [Suspect]
     Active Substance: ASENAPINE
     Dosage: 10 MILLIGRAM, BID
  42. ASENAPINE [Suspect]
     Active Substance: ASENAPINE
     Dosage: 10 MILLIGRAM, BID
  43. ASENAPINE [Suspect]
     Active Substance: ASENAPINE
     Dosage: 10 MILLIGRAM, BID
     Route: 065
  44. ASENAPINE [Suspect]
     Active Substance: ASENAPINE
     Dosage: 10 MILLIGRAM, BID
     Route: 065
  45. CHLORPROMAZINE [Suspect]
     Active Substance: CHLORPROMAZINE
     Indication: Schizophrenia
     Route: 065
  46. CHLORPROMAZINE [Suspect]
     Active Substance: CHLORPROMAZINE
  47. CHLORPROMAZINE [Suspect]
     Active Substance: CHLORPROMAZINE
  48. CHLORPROMAZINE [Suspect]
     Active Substance: CHLORPROMAZINE
     Route: 065
  49. CHLORPROMAZINE [Suspect]
     Active Substance: CHLORPROMAZINE
     Route: 065
  50. CHLORPROMAZINE [Suspect]
     Active Substance: CHLORPROMAZINE
  51. CHLORPROMAZINE [Suspect]
     Active Substance: CHLORPROMAZINE
  52. CHLORPROMAZINE [Suspect]
     Active Substance: CHLORPROMAZINE
     Route: 065
  53. OLANZAPINE [Suspect]
     Active Substance: OLANZAPINE
     Indication: Schizophrenia
  54. OLANZAPINE [Suspect]
     Active Substance: OLANZAPINE
     Route: 065
  55. OLANZAPINE [Suspect]
     Active Substance: OLANZAPINE
     Route: 065
  56. OLANZAPINE [Suspect]
     Active Substance: OLANZAPINE

REACTIONS (3)
  - Manic symptom [Recovered/Resolved]
  - Drug ineffective [Unknown]
  - Off label use [Unknown]
